FAERS Safety Report 4285990-2 (Version None)
Quarter: 2004Q1

REPORT INFORMATION
  Report Type: 
  Country: None (occurrence: None)
  Receive Date: 20040204
  Receipt Date: 20040204
  Transmission Date: 20041129
  Serious: No
  Sender: FDA-Public Use
  Company Number: None

PATIENT
  Sex: Female

DRUGS (1)
  1. LITHIUM 300 MG [Suspect]
     Indication: PSYCHOTIC DISORDER
     Dosage: 900 MG QD ORAL
     Route: 048
     Dates: start: 20030917, end: 20031117

REACTIONS (1)
  - TREMOR [None]
